FAERS Safety Report 5367521-9 (Version None)
Quarter: 2007Q2

REPORT INFORMATION
  Report Type: 
  Country: None (occurrence: None)
  Receive Date: 20070620
  Receipt Date: 20070620
  Transmission Date: 20071010
  Serious: Yes (Other)
  Sender: FDA-Public Use
  Company Number: None

PATIENT
  Sex: Female
  Weight: 81.1939 kg

DRUGS (3)
  1. DURAGESIC-100 [Suspect]
     Indication: BACK PAIN
     Dosage: 25MCG 72 HOURS PATCH
     Dates: start: 20070515
  2. DURAGESIC-100 [Suspect]
     Indication: INTERVERTEBRAL DISC DISORDER
     Dosage: 25MCG 72 HOURS PATCH
     Dates: start: 20070515
  3. DURAGESIC-100 [Suspect]
     Indication: OSTEOARTHRITIS
     Dosage: 25MCG 72 HOURS PATCH
     Dates: start: 20070515

REACTIONS (6)
  - DRUG EFFECT DECREASED [None]
  - MALAISE [None]
  - MENTAL IMPAIRMENT [None]
  - PHARMACEUTICAL PRODUCT COMPLAINT [None]
  - SOMNOLENCE [None]
  - STUPOR [None]
